FAERS Safety Report 8195624-2 (Version None)
Quarter: 2012Q1

REPORT INFORMATION
  Report Type: 
  Country: None (occurrence: None)
  Receive Date: 20120308
  Receipt Date: 20120305
  Transmission Date: 20120608
  Serious: Yes (Other)
  Sender: FDA-Public Use
  Company Number: SE-PFIZER INC-2012059042

PATIENT
  Sex: Female

DRUGS (1)
  1. PROVERA [Suspect]
     Indication: MENORRHAGIA
     Dosage: 2 DF, 1X/DAY

REACTIONS (2)
  - METRORRHAGIA [None]
  - CERVICAL DYSPLASIA [None]
